FAERS Safety Report 16665536 (Version 3)
Quarter: 2019Q3

REPORT INFORMATION
  Report Type: Spontaneous
  Country: JP (occurrence: JP)
  Receive Date: 20190803
  Receipt Date: 20190918
  Transmission Date: 20191004
  Serious: Yes (Other)
  Sender: FDA-Public Use
  Company Number: JP-009507513-1907JPN003780J

PATIENT
  Age: 44 Year
  Sex: Male
  Weight: 114 kg

DRUGS (12)
  1. BAKTAR [Suspect]
     Active Substance: SULFAMETHOXAZOLE\TRIMETHOPRIM
     Dosage: 100 MILLIGRAM, BID
     Route: 048
     Dates: start: 20190702, end: 20190703
  2. JANUVIA [Suspect]
     Active Substance: SITAGLIPTIN PHOSPHATE
     Indication: TYPE 2 DIABETES MELLITUS
     Dosage: 50 MILLIGRAM, QD;IN THE MORNING
     Route: 048
     Dates: start: 20190702, end: 20190702
  3. MINOCYCLINE [Suspect]
     Active Substance: MINOCYCLINE HYDROCHLORIDE
     Dosage: 100 MILLIGRAM, BID
     Route: 048
     Dates: start: 20190702, end: 20190702
  4. CANAGLIFLOZIN [Concomitant]
     Active Substance: CANAGLIFLOZIN
     Indication: DIABETES MELLITUS
     Dosage: 100 MILLIGRAM, QD, MORNING
     Route: 048
     Dates: start: 20190516, end: 20190623
  5. DAIPHEN [Concomitant]
     Active Substance: SULFAMETHOXAZOLE\TRIMETHOPRIM
     Dosage: 6 DOSAGE FORM, BID, AT NOON
     Route: 048
     Dates: start: 20190702, end: 20190702
  6. DAPTOMYCIN. [Concomitant]
     Active Substance: DAPTOMYCIN
     Indication: STAPHYLOCOCCAL INFECTION
     Dosage: 700 MILLIGRAM, QD
     Route: 041
     Dates: start: 20190620, end: 20190629
  7. LOXOPROFEN NA [Concomitant]
     Active Substance: LOXOPROFEN SODIUM
     Dosage: 60 MILLIGRAM, TID
     Route: 048
     Dates: start: 20190617
  8. REBAMIPIDE [Concomitant]
     Active Substance: REBAMIPIDE
     Dosage: 100 MILLIGRAM, TID
     Route: 048
     Dates: start: 20190617
  9. VANCOMYCIN HYDROCHLORIDE. [Concomitant]
     Active Substance: VANCOMYCIN HYDROCHLORIDE
     Dosage: 1 GRAM, BID
     Route: 041
     Dates: start: 20190602, end: 20190617
  10. VANCOMYCIN HYDROCHLORIDE. [Concomitant]
     Active Substance: VANCOMYCIN HYDROCHLORIDE
     Dosage: 1.5 GRAM, BID
     Route: 041
     Dates: start: 20190618, end: 20190620
  11. GENTAMICIN. [Concomitant]
     Active Substance: GENTAMICIN
     Dosage: 60 MILLIGRAM/DAY;4 PARTS
     Route: 061
     Dates: start: 20190617, end: 20190701
  12. SODIUM (UNSPECIFIED) [Concomitant]
     Dosage: 100 MILLIGRAM, BID
     Route: 048
     Dates: start: 20190628

REACTIONS (2)
  - Acute kidney injury [Recovering/Resolving]
  - Dermatitis exfoliative generalised [Recovering/Resolving]

NARRATIVE: CASE EVENT DATE: 20190702
